FAERS Safety Report 4542022-6 (Version None)
Quarter: 2004Q4

REPORT INFORMATION
  Report Type: 
  Country: None (occurrence: None)
  Receive Date: 20041230
  Receipt Date: 20010530
  Transmission Date: 20050328
  Serious: Yes (Disabling)
  Sender: FDA-Public Use
  Company Number: US-MERCK-01052881

PATIENT
  Age: 85 Year
  Sex: Female

DRUGS (16)
  1. ZOCOR [Suspect]
     Indication: HYPERCHOLESTEROLAEMIA
     Route: 048
     Dates: start: 20010901, end: 20020301
  2. ZOCOR [Suspect]
     Route: 048
     Dates: start: 20020301, end: 20040101
  3. ZOCOR [Suspect]
     Route: 048
     Dates: start: 19970501
  4. ZOCOR [Suspect]
     Route: 048
     Dates: start: 20000101
  5. ZOCOR [Suspect]
     Route: 048
  6. ZOCOR [Suspect]
     Indication: CAROTID ARTERY DISEASE
     Route: 048
     Dates: start: 20010901, end: 20020301
  7. ZOCOR [Suspect]
     Route: 048
     Dates: start: 20020301, end: 20040101
  8. ZOCOR [Suspect]
     Route: 048
     Dates: start: 19970501
  9. ZOCOR [Suspect]
     Route: 048
     Dates: start: 20000101
  10. ZOCOR [Suspect]
     Route: 048
  11. VALIUM [Concomitant]
     Route: 065
  12. ASPIRIN [Concomitant]
     Route: 065
  13. [THERAPY UNSPECIFIED] [Concomitant]
     Route: 065
  14. HORMONES (UNSPECIFIED) [Concomitant]
     Route: 067
  15. LEVOBUNOLOL HYDROCHLORIDE [Concomitant]
     Route: 065
  16. CITRACAL [Concomitant]
     Route: 065

REACTIONS (13)
  - ABDOMINAL PAIN [None]
  - ABNORMAL DREAMS [None]
  - ALOPECIA [None]
  - ANXIETY DISORDER [None]
  - CHEST PAIN [None]
  - DRUG INEFFECTIVE [None]
  - FEELING ABNORMAL [None]
  - MOVEMENT DISORDER [None]
  - MUSCLE CRAMP [None]
  - NECK PAIN [None]
  - NIGHTMARE [None]
  - PAIN IN EXTREMITY [None]
  - PSORIASIS [None]
